FAERS Safety Report 9808866 (Version 3)
Quarter: 2014Q1

REPORT INFORMATION
  Report Type: Report from Study
  Country: US (occurrence: US)
  Receive Date: 20140110
  Receipt Date: 20140307
  Transmission Date: 20141002
  Serious: Yes (Death, Hospitalization, Other)
  Sender: FDA-Public Use
  Company Number: US-ALEXION-A201202645

PATIENT
  Age: 62 Year
  Sex: Female
  Weight: 72 kg

DRUGS (16)
  1. SOLIRIS [Suspect]
     Indication: HAEMOLYTIC URAEMIC SYNDROME
     Dosage: 900 MG, QW
     Route: 042
     Dates: start: 20120627, end: 20120718
  2. PROGRAF [Suspect]
     Dosage: UNK
  3. ASCORBIC ACID [Concomitant]
     Dosage: 500 MG, BID
     Route: 048
  4. CARVEDILOL [Concomitant]
     Dosage: 12.5 MG, BID
     Route: 048
  5. CHOLECALCIFEROL [Concomitant]
     Dosage: 1 TAB, QD
     Route: 048
  6. CYCLOSPORINE [Concomitant]
     Dosage: 100 MG, BID
     Route: 048
  7. CYCLOSPORINE [Concomitant]
     Dosage: 75 MG, BID
     Route: 048
  8. DARBEPOETIN ALFA [Concomitant]
     Dosage: 20 MCG, QMONTH
     Route: 058
  9. FOLIC ACID [Concomitant]
     Dosage: 1 TAB, QD
     Route: 048
  10. MAGNESIUM OXIDE [Concomitant]
     Dosage: 400 MG, BID
     Route: 048
  11. MULTIVITAMIN AND MINERAL [Concomitant]
  12. MYCOPHENOLATE [Concomitant]
     Dosage: 360 MG, BID
     Route: 048
  13. PENICILLIN V POTASSIUM [Concomitant]
     Dosage: 500 MG, BID
     Route: 048
  14. PENTAMIDINE [Concomitant]
     Dosage: 300 MG, QMONTH
  15. PREDNISONE [Concomitant]
     Dosage: 5 MG, QD
     Route: 048
  16. VALGANCICLOVIR [Concomitant]
     Dosage: 450 MG, QD
     Route: 048

REACTIONS (9)
  - Death [Fatal]
  - Congenital cystic kidney disease [Unknown]
  - Adverse reaction [Unknown]
  - Splenomegaly [Unknown]
  - Anaemia of chronic disease [Unknown]
  - Swelling [Unknown]
  - Jaundice [Unknown]
  - Haemosiderosis [Unknown]
  - Hepatic cyst [Unknown]
